FAERS Safety Report 8218877-0 (Version None)
Quarter: 2012Q1

REPORT INFORMATION
  Report Type: 
  Country: None (occurrence: None)
  Receive Date: 20120307
  Receipt Date: 20100614
  Transmission Date: 20120608
  Serious: Yes (Other)
  Sender: FDA-Public Use
  Company Number: PHHY2010US38925

PATIENT
  Age: 75 Year
  Sex: Male

DRUGS (2)
  1. AFINITOR [Suspect]
     Indication: RENAL CELL CARCINOMA
     Dosage: 10 MG, QD, ORAL ; 10 MG, QD
     Route: 048
     Dates: start: 20091015, end: 20100301
  2. AFINITOR [Suspect]
     Indication: RENAL CELL CARCINOMA
     Dosage: 10 MG, QD, ORAL ; 10 MG, QD
     Route: 048
     Dates: start: 20100401, end: 20100511

REACTIONS (3)
  - HAEMOPTYSIS [None]
  - DYSPNOEA [None]
  - PNEUMONITIS [None]
